FAERS Safety Report 4491306-9 (Version None)
Quarter: 2004Q4

REPORT INFORMATION
  Report Type: 
  Country: None (occurrence: None)
  Receive Date: 20041101
  Receipt Date: 20041101
  Transmission Date: 20050328
  Serious: Yes (Life-Threatening)
  Sender: FDA-Public Use
  Company Number: None

PATIENT
  Age: 52 Year
  Sex: Male
  Weight: 95.2554 kg

DRUGS (2)
  1. REMICADE [Suspect]
     Indication: RHEUMATOID ARTHRITIS
     Dosage: 1/8 WEEKS   INFUSION   INTRAVENOU
     Route: 042
     Dates: start: 20021001, end: 20040118
  2. CELEBREX [Concomitant]

REACTIONS (6)
  - BLOOD DISORDER [None]
  - DYSPEPSIA [None]
  - DYSPNOEA [None]
  - INFLUENZA LIKE ILLNESS [None]
  - MYOCARDIAL INFARCTION [None]
  - POISONING [None]
